FAERS Safety Report 7595933-1 (Version None)
Quarter: 2011Q3

REPORT INFORMATION
  Report Type: 
  Country: None (occurrence: None)
  Receive Date: 20110707
  Receipt Date: 20110628
  Transmission Date: 20111222
  Serious: Yes (Hospitalization, Other)
  Sender: FDA-Public Use
  Company Number: US-ABBOTT-11P-163-0705070-00

PATIENT
  Sex: Female
  Weight: 54.48 kg

DRUGS (7)
  1. HUMIRA [Suspect]
     Indication: PSORIASIS
     Dates: start: 20090101, end: 20110101
  2. UNKNOWN PAIN MEDICATION [Suspect]
     Indication: PRODUCT USED FOR UNKNOWN INDICATION
  3. XANAX [Concomitant]
     Indication: ANXIETY
  4. PLAVIX [Concomitant]
     Indication: VASCULAR STENT INSERTION
  5. SIMVASTATIN [Concomitant]
     Indication: BLOOD CHOLESTEROL INCREASED
  6. PERCOCET [Concomitant]
     Indication: SPINAL FRACTURE
     Dates: start: 20110601
  7. NEURONTIN [Concomitant]
     Indication: NEUROPATHY PERIPHERAL

REACTIONS (11)
  - SPINAL FRACTURE [None]
  - RESPIRATORY TRACT CONGESTION [None]
  - INFLUENZA [None]
  - PAIN OF SKIN [None]
  - IMPAIRED HEALING [None]
  - FALL [None]
  - FEELING ABNORMAL [None]
  - MYALGIA [None]
  - SKIN FISSURES [None]
  - WOUND [None]
  - HALLUCINATION [None]
